FAERS Safety Report 11640929 (Version 2)
Quarter: 2015Q4

REPORT INFORMATION
  Report Type: Spontaneous
  Country: IT (occurrence: IT)
  Receive Date: 20151019
  Receipt Date: 20151026
  Transmission Date: 20160304
  Serious: Yes (Other)
  Sender: FDA-Public Use
  Company Number: IT-PFIZER INC-2015346934

PATIENT
  Age: 47 Year
  Sex: Female

DRUGS (12)
  1. GLAZIDIM [Concomitant]
     Active Substance: CEFTAZIDIME
     Dosage: 6 G, UNK
     Route: 042
     Dates: start: 20150923, end: 20150924
  2. PANTORC [Concomitant]
     Active Substance: PANTOPRAZOLE SODIUM
     Dosage: 40 MG, UNK
     Route: 042
  3. CERNEVIT [Concomitant]
     Active Substance: VITAMINS
     Dosage: 1 DF, UNK
     Route: 042
  4. PULMAXAN [Concomitant]
     Active Substance: BUDESONIDE
     Dosage: 2 MG, UNK
     Route: 055
  5. PIPERACILLIN/ TAZOBACTAM KABI [Concomitant]
     Active Substance: PIPERACILLIN SODIUM\TAZOBACTAM SODIUM
     Dosage: 13.5 G, UNK
     Route: 042
     Dates: start: 20150925, end: 20151002
  6. TAVOR [Concomitant]
     Active Substance: LORAZEPAM
     Dosage: 2 MG, UNK
     Route: 055
     Dates: start: 20150918, end: 20150925
  7. ULTIVA [Concomitant]
     Active Substance: REMIFENTANIL HYDROCHLORIDE
     Dosage: UNK
     Route: 041
     Dates: start: 20150911, end: 20150928
  8. SEREVENT DISKUS [Concomitant]
     Active Substance: SALMETEROL XINAFOATE
     Dosage: 200 ?G, UNK
     Route: 055
  9. DIPRIVAN [Concomitant]
     Active Substance: PROPOFOL
     Dosage: UNK
     Route: 041
     Dates: start: 20150923, end: 20150926
  10. VFEND [Suspect]
     Active Substance: VORICONAZOLE
     Indication: ASPERGILLUS INFECTION
     Dosage: 400 MG, DAILY
     Route: 041
     Dates: start: 20150922, end: 20150927
  11. ATARAX [Concomitant]
     Active Substance: HYDROXYZINE\HYDROXYZINE HYDROCHLORIDE
     Dosage: 200 MG, UNK
     Route: 048
     Dates: start: 20150916, end: 20150926
  12. ATEM [Concomitant]
     Active Substance: IPRATROPIUM BROMIDE
     Dosage: 1.5 MG, UNK
     Route: 055

REACTIONS (1)
  - Hyperbilirubinaemia [Recovered/Resolved]

NARRATIVE: CASE EVENT DATE: 20150925
